FAERS Safety Report 7206413-7 (Version None)
Quarter: 2011Q1

REPORT INFORMATION
  Report Type: 
  Country: None (occurrence: None)
  Receive Date: 20110103
  Receipt Date: 20110103
  Transmission Date: 20110831
  Serious: Yes (Hospitalization)
  Sender: FDA-Public Use
  Company Number: PHHO2007DE12140

PATIENT
  Sex: Female
  Weight: 70.8 kg

DRUGS (3)
  1. THIACIDE [Concomitant]
  2. LOSARTAN [Concomitant]
     Dates: start: 20070711
  3. CERTICAN [Suspect]
     Indication: CONGENITAL CYSTIC KIDNEY DISEASE
     Dosage: 2.5 MG, BID
     Route: 048
     Dates: start: 20070711, end: 20070722

REACTIONS (3)
  - INFECTION [None]
  - PYREXIA [None]
  - DIARRHOEA [None]
